FAERS Safety Report 16814411 (Version 5)
Quarter: 2020Q4

REPORT INFORMATION
  Report Type: Spontaneous
  Country: US (occurrence: US)
  Receive Date: 20190917
  Receipt Date: 20201009
  Transmission Date: 20210113
  Serious: Yes (Other)
  Sender: FDA-Public Use
  Company Number: US-GILEAD-2019-0428037

PATIENT
  Age: 58 Year
  Sex: Female

DRUGS (1)
  1. TRUVADA [Suspect]
     Active Substance: EMTRICITABINE\TENOFOVIR DISOPROXIL FUMARATE
     Indication: HIV INFECTION
     Dosage: UNK
     Route: 048
     Dates: start: 20100114, end: 201212

REACTIONS (10)
  - Osteoporosis [Not Recovered/Not Resolved]
  - Economic problem [Unknown]
  - Multiple fractures [Unknown]
  - Anhedonia [Unknown]
  - Anxiety [Unknown]
  - Pain [Unknown]
  - Osteopenia [Not Recovered/Not Resolved]
  - Bone loss [Unknown]
  - Osteonecrosis [Unknown]
  - Emotional distress [Unknown]

NARRATIVE: CASE EVENT DATE: 201912
